FAERS Safety Report 18781427 (Version 1)
Quarter: 2021Q1

REPORT INFORMATION
  Report Type: Report from Study
  Country: IN (occurrence: IN)
  Receive Date: 20210125
  Receipt Date: 20210125
  Transmission Date: 20210419
  Serious: Yes (Other)
  Sender: FDA-Public Use
  Company Number: IN-EVUS PHARMACEUTICALS, LLC-EPL202101-000003

PATIENT
  Age: 39 Year
  Sex: Female

DRUGS (4)
  1. LABETALOL [Concomitant]
     Active Substance: LABETALOL\LABETALOL HYDROCHLORIDE
     Indication: HYPERTENSION
     Dosage: 20 MG
     Route: 042
  2. NITROGLYCERIN. [Suspect]
     Active Substance: NITROGLYCERIN
     Indication: BRADYCARDIA
     Dosage: UNKNOWN
  3. MAGNESIUM SULPHATE [Concomitant]
     Active Substance: MAGNESIUM SULFATE
     Indication: HYPERTENSION
     Dosage: 4 GM (LOADING DOSE)
     Route: 042
  4. MAGNESIUM SULPHATE [Concomitant]
     Active Substance: MAGNESIUM SULFATE
     Dosage: 3 GM (IN EACH BUTTOCK)
     Route: 030

REACTIONS (1)
  - Posterior reversible encephalopathy syndrome [Recovered/Resolved]
